FAERS Safety Report 17377403 (Version 1)
Quarter: 2020Q1

REPORT INFORMATION
  Report Type: Spontaneous
  Country: JP (occurrence: JP)
  Receive Date: 20200206
  Receipt Date: 20200206
  Transmission Date: 20200409
  Serious: Yes (Hospitalization, Other)
  Sender: FDA-Public Use
  Company Number: JP-BAYER-2019-188564

PATIENT
  Age: 49 Year
  Sex: Female
  Weight: 60.6 kg

DRUGS (8)
  1. STIVARGA [Suspect]
     Active Substance: REGORAFENIB
     Indication: METASTASES TO PERITONEUM
     Dosage: DAILY DOSE 1T, 3-WEEK TREATMENT FOLLOWED BY 1-WEEK REST PERIOD
     Route: 048
     Dates: start: 20191019, end: 20191118
  2. PROMAC D [Concomitant]
     Active Substance: POLAPREZINC
     Dosage: DAILY DOSE 150 MG
     Route: 048
     Dates: start: 20190913, end: 20191201
  3. STIVARGA [Suspect]
     Active Substance: REGORAFENIB
     Indication: COLON CANCER RECURRENT
     Dosage: DAILY DOSE 2T, 3-WEEK TREATMENT FOLLOWED BY 1-WEEK REST PERIOD
     Route: 048
     Dates: start: 20190930, end: 20191006
  4. DERMOVATE [Concomitant]
     Active Substance: CLOBETASOL
     Indication: DRUG TOXICITY PROPHYLAXIS
     Dosage: UNK
     Route: 061
     Dates: start: 20170622
  5. FLUTIDE NASETTEN [Concomitant]
     Dosage: DAILY DOSE 100 ?G
     Route: 055
     Dates: start: 20190705
  6. HIRUDOID [Concomitant]
     Active Substance: GLYCOSAMINOGLYCANS
     Indication: DRUG TOXICITY PROPHYLAXIS
     Dosage: UNK
     Route: 061
     Dates: start: 20170621
  7. ANTEBATE [Concomitant]
     Active Substance: BETAMETHASONE DIPROPIONATE
     Indication: DRUG TOXICITY PROPHYLAXIS
     Dosage: UNK
     Route: 061
     Dates: start: 20181102
  8. STIVARGA [Suspect]
     Active Substance: REGORAFENIB
     Indication: METASTASES TO OVARY

REACTIONS (7)
  - Alanine aminotransferase increased [None]
  - Blood bilirubin increased [None]
  - Hepatic enzyme increased [None]
  - Aspartate aminotransferase increased [None]
  - Hepatic function abnormal [None]
  - Pyrexia [None]
  - Colon cancer [None]

NARRATIVE: CASE EVENT DATE: 20191007
